FAERS Safety Report 8875422 (Version 3)
Quarter: 2014Q2

REPORT INFORMATION
  Report Type: Spontaneous
  Country: US (occurrence: US)
  Receive Date: 20121029
  Receipt Date: 20131018
  Transmission Date: 20141212
  Serious: Yes (Hospitalization, Other)
  Sender: FDA-Public Use
  Company Number: US-PFIZER INC-2012263049

PATIENT
  Age: 49 Year
  Sex: Male

DRUGS (2)
  1. ENBREL [Suspect]
     Indication: RHEUMATOID ARTHRITIS
     Dosage: 50 MG, QWK
     Dates: start: 200410, end: 201208
  2. VANCOMYCIN HCL [Suspect]
     Dosage: UNK

REACTIONS (4)
  - Bacterial abscess central nervous system [Unknown]
  - Pulmonary mass [Unknown]
  - Drug eruption [Unknown]
  - Tooth disorder [Unknown]
